FAERS Safety Report 6844887-1 (Version None)
Quarter: 2010Q3

REPORT INFORMATION
  Report Type: 
  Country: None (occurrence: None)
  Receive Date: 20100715
  Receipt Date: 20100702
  Transmission Date: 20110219
  Serious: Yes (Hospitalization)
  Sender: FDA-Public Use
  Company Number: DE-MYLANLABS-2009S1004647

PATIENT
  Age: 70 Year
  Sex: Male
  Weight: 62 kg

DRUGS (7)
  1. FENTANYL [Suspect]
     Indication: PANCREATIC CARCINOMA METASTATIC
     Route: 062
     Dates: start: 20090122
  2. PANTOZOL [Concomitant]
     Indication: GASTROINTESTINAL HAEMORRHAGE
     Route: 048
     Dates: start: 20090101
  3. PANZYTRAT /00014701/ [Concomitant]
     Indication: PANCREATIC CARCINOMA METASTATIC
     Route: 048
     Dates: start: 20080101
  4. SUCRALFATE [Concomitant]
     Indication: GASTROINTESTINAL HAEMORRHAGE
     Route: 048
     Dates: start: 20090101
  5. URSO FALK [Concomitant]
     Indication: PANCREATIC CARCINOMA METASTATIC
     Route: 048
     Dates: start: 20080101
  6. METAMIZOLE [Concomitant]
     Indication: PANCREATIC CARCINOMA METASTATIC
     Route: 048
     Dates: start: 20090115
  7. INSULIN [Concomitant]
     Indication: TYPE 2 DIABETES MELLITUS
     Route: 058
     Dates: start: 20080101

REACTIONS (1)
  - FAECALOMA [None]
